FAERS Safety Report 7025750-2 (Version None)
Quarter: 2010Q4

REPORT INFORMATION
  Report Type: 
  Country: None (occurrence: None)
  Receive Date: 20101004
  Receipt Date: 20100923
  Transmission Date: 20110411
  Serious: Yes (Hospitalization)
  Sender: FDA-Public Use
  Company Number: FR-BIOGENIDEC-2010BI020974

PATIENT
  Age: 60 Year
  Sex: Male
  Weight: 70 kg

DRUGS (13)
  1. AVONEX [Suspect]
     Indication: MULTIPLE SCLEROSIS
     Route: 030
     Dates: start: 20070901, end: 20100608
  2. AVONEX [Suspect]
     Route: 030
     Dates: start: 20100831, end: 20100907
  3. AVONEX [Suspect]
     Route: 030
     Dates: start: 20100914, end: 20100914
  4. AVONEX [Suspect]
     Route: 030
     Dates: start: 20100921
  5. KARDEGIC [Concomitant]
     Route: 048
  6. KARDEGIC [Concomitant]
     Route: 048
     Dates: start: 20100601
  7. TEMERIT [Concomitant]
     Route: 048
  8. IRBESARTAN [Concomitant]
     Route: 048
  9. TAMSULOSINE [Concomitant]
     Route: 048
  10. CERIS [Concomitant]
     Route: 048
  11. SIMVASTATIN [Concomitant]
     Route: 048
  12. ZOLPIDEM [Concomitant]
     Route: 048
  13. LIORESAL [Concomitant]
     Indication: MUSCLE SPASTICITY
     Route: 048

REACTIONS (2)
  - ACUTE PULMONARY OEDEMA [None]
  - DYSPNOEA [None]
